FAERS Safety Report 17948277 (Version 1)
Quarter: 2020Q2

REPORT INFORMATION
  Report Type: Spontaneous
  Country: US (occurrence: US)
  Receive Date: 20200625
  Receipt Date: 20200625
  Transmission Date: 20200714
  Serious: Yes (Hospitalization)
  Sender: FDA-Public Use
  Company Number: None

PATIENT
  Age: 30 Year
  Sex: Male

DRUGS (11)
  1. SILDENAFIL. [Concomitant]
     Active Substance: SILDENAFIL
  2. METOLAZONE. [Concomitant]
     Active Substance: METOLAZONE
  3. AMIODARONE [Concomitant]
     Active Substance: AMIODARONE
  4. LORAZEPAM. [Concomitant]
     Active Substance: LORAZEPAM
  5. PRADAXA [Concomitant]
     Active Substance: DABIGATRAN ETEXILATE MESYLATE
  6. OPSUMIT [Suspect]
     Active Substance: MACITENTAN
     Indication: PULMONARY ARTERIAL HYPERTENSION
     Route: 048
     Dates: start: 201905
  7. ZOFRAN [Concomitant]
     Active Substance: ONDANSETRON HYDROCHLORIDE
  8. METOPROLOL. [Concomitant]
     Active Substance: METOPROLOL
  9. POTASSIUM CHLORIDE. [Concomitant]
     Active Substance: POTASSIUM CHLORIDE
  10. BENZONATATE. [Concomitant]
     Active Substance: BENZONATATE
  11. BUMETANIDE. [Concomitant]
     Active Substance: BUMETANIDE

REACTIONS (9)
  - Atrial fibrillation [None]
  - Dehydration [None]
  - Gastroenteritis [None]
  - Cardiac failure [None]
  - Asthenia [None]
  - Sepsis [None]
  - Endocarditis [None]
  - Hypokalaemia [None]
  - Cardiac failure congestive [None]

NARRATIVE: CASE EVENT DATE: 20200420
